FAERS Safety Report 12412916 (Version 2)
Quarter: 2016Q2

REPORT INFORMATION
  Report Type: Spontaneous
  Country: US (occurrence: US)
  Receive Date: 20160527
  Receipt Date: 20160606
  Transmission Date: 20160815
  Serious: No
  Sender: FDA-Public Use
  Company Number: US-PFIZER INC-2016275375

PATIENT
  Sex: Female

DRUGS (1)
  1. PHOSPHOLINE IODIDE [Suspect]
     Active Substance: ECHOTHIOPHATE IODIDE
     Indication: MIOSIS
     Dosage: UNK
     Route: 047

REACTIONS (3)
  - Pupillary light reflex tests abnormal [Not Recovered/Not Resolved]
  - Pupils unequal [Not Recovered/Not Resolved]
  - Product use issue [Unknown]
